FAERS Safety Report 18034480 (Version 3)
Quarter: 2020Q3

REPORT INFORMATION
  Report Type: Spontaneous
  Country: US (occurrence: US)
  Receive Date: 20200716
  Receipt Date: 20200826
  Transmission Date: 20201103
  Serious: Yes (Death, Hospitalization)
  Sender: FDA-Public Use
  Company Number: US-ACTELION-A-US2020-206948

PATIENT
  Age: 73 Year
  Sex: Female
  Weight: 53.06 kg

DRUGS (25)
  1. UPTRAVI [Suspect]
     Active Substance: SELEXIPAG
     Indication: PULMONARY ARTERIAL HYPERTENSION
     Dosage: 1600 MCG, BID
     Route: 048
     Dates: end: 20200722
  2. AMBRISENTAN [Concomitant]
     Active Substance: AMBRISENTAN
     Dosage: 10 MG, QD
     Route: 048
  3. AMLODIPINE [Concomitant]
     Active Substance: AMLODIPINE BESYLATE
     Dosage: 2.5 MG, QD
     Route: 048
  4. PILOCARPINE. [Concomitant]
     Active Substance: PILOCARPINE
     Dosage: 7.5 MG, QID, PRN
     Route: 048
  5. VANCOMYCIN [Concomitant]
     Active Substance: VANCOMYCIN
     Dosage: 125 MG, Q6HRS
     Route: 048
  6. SPIRONOLACTONE. [Concomitant]
     Active Substance: SPIRONOLACTONE
     Dosage: 25 MG, BID
     Route: 048
  7. ZINC CITRATE [Concomitant]
     Active Substance: ZINC CITRATE
     Dosage: 50 MG, QD
     Route: 048
  8. LACTOBACILLUS RHAMNOSUS [Concomitant]
     Active Substance: LACTOBACILLUS RHAMNOSUS
     Dosage: 1 CAPSULE, QD
     Route: 048
  9. VENTAVIS [Suspect]
     Active Substance: ILOPROST
     Indication: PULMONARY ARTERIAL HYPERTENSION
     Route: 055
  10. TADALAFIL. [Concomitant]
     Active Substance: TADALAFIL
     Dosage: 40 MG, QD
     Route: 048
  11. POTASSIUM CHLORIDE. [Concomitant]
     Active Substance: POTASSIUM CHLORIDE
     Dosage: 10 MEQ, QD
     Route: 048
  12. THERATEARS [Concomitant]
     Active Substance: CARBOXYMETHYLCELLULOSE SODIUM
     Dosage: UNK, BOTH EYES, BID
     Route: 047
  13. VITAMIN C [Concomitant]
     Active Substance: ASCORBIC ACID
     Dosage: 1000 MG, QD
     Route: 048
  14. FLUDROCORTISONE [Concomitant]
     Active Substance: FLUDROCORTISONE
     Dosage: 0.1 MG, QD
     Route: 048
  15. IRON [Concomitant]
     Active Substance: IRON
     Dosage: 150MG, 65MG, QD
     Route: 048
  16. ONDANSETRON [Suspect]
     Active Substance: ONDANSETRON
     Indication: PRODUCT USED FOR UNKNOWN INDICATION
     Dosage: 4 MG
     Route: 048
     Dates: start: 20200701
  17. FUROSEMIDE. [Concomitant]
     Active Substance: FUROSEMIDE
     Dosage: 40 MG, UNK
     Route: 048
  18. ANORO ELLIPTA [Concomitant]
     Active Substance: UMECLIDINIUM BROMIDE\VILANTEROL TRIFENATATE
     Dosage: 62.5 MCG?25 MCG, QD
  19. MAGNESIUM GLUCONATE [Concomitant]
     Active Substance: MAGNESIUM GLUCONATE
     Dosage: 250 MG, QD
     Route: 048
  20. PANTOPRAZOLE [Concomitant]
     Active Substance: PANTOPRAZOLE
     Dosage: 40 MG, QD
     Route: 048
  21. PATANOL [Concomitant]
     Active Substance: OLOPATADINE HYDROCHLORIDE
     Dosage: 0.1% OPTHALMIC SOLN, 1 GTT, BOTH EYES, BID, PRN
     Route: 047
  22. CALCIUM + VIT D [Concomitant]
     Active Substance: CALCIUM\VITAMIN D
     Dosage: 600MG + 400 IU, BID
     Route: 048
  23. MECLIZINE [Concomitant]
     Active Substance: MECLIZINE HYDROCHLORIDE
     Dosage: UNK, TID
     Route: 048
  24. TIZANIDINE. [Concomitant]
     Active Substance: TIZANIDINE
     Dosage: 4 MG
     Route: 048
  25. TRAMADOL. [Concomitant]
     Active Substance: TRAMADOL
     Dosage: 50 MG
     Route: 048

REACTIONS (38)
  - Brain natriuretic peptide increased [Fatal]
  - Vertigo [Unknown]
  - General physical health deterioration [Unknown]
  - Cardiac failure acute [Fatal]
  - Leukocytosis [Unknown]
  - Pericardial effusion [Unknown]
  - Right ventricular failure [Fatal]
  - Large intestine infection [Unknown]
  - Acute kidney injury [Unknown]
  - Ascites [Unknown]
  - Diverticulum intestinal [Unknown]
  - Breath sounds abnormal [Unknown]
  - Vomiting [Unknown]
  - Hypotension [Fatal]
  - Pulmonary hypertension [Fatal]
  - Pneumonia [Fatal]
  - Chronic kidney disease [Fatal]
  - Electrocardiogram ST-T segment abnormal [Unknown]
  - Diastolic dysfunction [Unknown]
  - Hypoxia [Fatal]
  - Clostridium difficile infection [Unknown]
  - Syncope [Unknown]
  - Troponin I increased [Unknown]
  - White blood cell count increased [Unknown]
  - Bronchitis [Unknown]
  - Lymphadenopathy mediastinal [Unknown]
  - Arrhythmia [Fatal]
  - Chronic obstructive pulmonary disease [Fatal]
  - Sjogren^s syndrome [Fatal]
  - Chest pain [Unknown]
  - Bundle branch block right [Unknown]
  - Pulseless electrical activity [Fatal]
  - Acute myocardial infarction [Fatal]
  - Dyspnoea [Unknown]
  - Blood creatinine increased [Unknown]
  - Aspiration [Unknown]
  - Emphysema [Unknown]
  - Tachypnoea [Unknown]

NARRATIVE: CASE EVENT DATE: 20200701
